FAERS Safety Report 12606974 (Version 1)
Quarter: 2016Q3

REPORT INFORMATION
  Report Type: Spontaneous
  Country: FR (occurrence: FR)
  Receive Date: 20160729
  Receipt Date: 20160729
  Transmission Date: 20161109
  Serious: Yes (Hospitalization, Disabling, Other)
  Sender: FDA-Public Use
  Company Number: FR-BRISTOL-MYERS SQUIBB COMPANY-BMS-2016-061480

PATIENT
  Age: 65 Year
  Sex: Female
  Weight: 42 kg

DRUGS (2)
  1. OPDIVO [Suspect]
     Active Substance: NIVOLUMAB
     Indication: BRONCHIAL CARCINOMA
     Dosage: 3 MG/KG, Q2WK
     Route: 042
     Dates: start: 201511
  2. PREDNISONE. [Suspect]
     Active Substance: PREDNISONE
     Indication: BRONCHIAL CARCINOMA
     Dosage: UNK
     Route: 048
     Dates: start: 201603

REACTIONS (4)
  - Metastases to central nervous system [Unknown]
  - Paronychia [Recovered/Resolved with Sequelae]
  - Osteitis [Recovered/Resolved with Sequelae]
  - Finger amputation [Recovered/Resolved with Sequelae]

NARRATIVE: CASE EVENT DATE: 20160614
